FAERS Safety Report 5225972-7 (Version None)
Quarter: 2007Q1

REPORT INFORMATION
  Report Type: 
  Country: None (occurrence: None)
  Receive Date: 20070129
  Receipt Date: 20070111
  Transmission Date: 20070707
  Serious: Yes (Other)
  Sender: FDA-Public Use
  Company Number: URSO-2006-053

PATIENT
  Age: 44 Year
  Sex: Male

DRUGS (5)
  1. URSO (URSODEOXYCHOLIC ACID) [Suspect]
     Indication: DRUG USE FOR UNKNOWN INDICATION
     Dosage: 3000MG, QD; PO
     Route: 048
     Dates: start: 20061006, end: 20060124
  2. ALLOPURINOL [Suspect]
     Dosage: PO
     Route: 048
  3. EPL (POLYENPHOSPHATIDYL CHOLINE) [Suspect]
     Dosage: PO
     Route: 048
  4. LEVOFLOXACIN [Suspect]
     Dosage: PO
     Route: 048
  5. MUCODYNE (CARBOCISTEINE) [Suspect]
     Dosage: PO
     Route: 048

REACTIONS (2)
  - DRUG ERUPTION [None]
  - ORAL MUCOSAL ERUPTION [None]
